FAERS Safety Report 10663761 (Version 2)
Quarter: 2014Q4

REPORT INFORMATION
  Report Type: Spontaneous
  Country: EG (occurrence: EG)
  Receive Date: 20141219
  Receipt Date: 20141219
  Transmission Date: 20150529
  Serious: Yes (Other)
  Sender: FDA-Public Use
  Company Number: EG-AMGEN-EGYSP2014074374

PATIENT
  Age: 60 Year
  Sex: Female

DRUGS (1)
  1. ENBREL [Suspect]
     Active Substance: ETANERCEPT
     Indication: RHEUMATOID ARTHRITIS
     Dosage: ONCE, WEEKLY
     Route: 058
     Dates: start: 20130731

REACTIONS (7)
  - Rash erythematous [Not Recovered/Not Resolved]
  - Hepatitis C [Unknown]
  - Therapeutic response unexpected [Unknown]
  - Rash [Unknown]
  - Hepatic fibrosis [Unknown]
  - Injection site reaction [Unknown]
  - Vasculitis [Recovering/Resolving]

NARRATIVE: CASE EVENT DATE: 201408
